FAERS Safety Report 24558965 (Version 1)
Quarter: 2024Q4

REPORT INFORMATION
  Report Type: Other
  Country: CA (occurrence: CA)
  Receive Date: 20241029
  Receipt Date: 20241029
  Transmission Date: 20250115
  Serious: Yes (Hospitalization, Other)
  Sender: GLENMARK
  Company Number: CA-GLENMARK PHARMACEUTICALS-2024GMK095020

PATIENT

DRUGS (2)
  1. GABAPENTIN [Suspect]
     Active Substance: GABAPENTIN
     Indication: Product used for unknown indication
     Dosage: UNK
     Route: 065
  2. OCRELIZUMAB [Suspect]
     Active Substance: OCRELIZUMAB
     Indication: Relapsing-remitting multiple sclerosis
     Dosage: 300 MILLIGRAM, 1 EVERY 14 DAYS
     Route: 042

REACTIONS (7)
  - Cerebral palsy [Recovered/Resolved]
  - Multiple sclerosis [Recovered/Resolved]
  - Procedural anxiety [Recovered/Resolved]
  - Pyelonephritis [Recovered/Resolved]
  - Vertigo positional [Recovered/Resolved]
  - Fall [Recovered/Resolved]
  - Treatment failure [Unknown]
